FAERS Safety Report 9844566 (Version 5)
Quarter: 2014Q2

REPORT INFORMATION
  Report Type: Spontaneous
  Country: US (occurrence: None)
  Receive Date: 20140123
  Receipt Date: 20140605
  Transmission Date: 20141212
  Serious: Yes (Other)
  Sender: FDA-Public Use
  Company Number: 2014CT000003

PATIENT
  Age: 35 Year
  Sex: Female
  Weight: 87.54 kg

DRUGS (9)
  1. KORLYM [Suspect]
     Indication: PITUITARY-DEPENDENT CUSHING^S SYNDROME
     Route: 048
     Dates: start: 20140108, end: 20140122
  2. LISINOPRIL [Concomitant]
  3. IBUPROFEN [Concomitant]
  4. XANAX [Concomitant]
  5. LABETALOL /00422302/ [Concomitant]
  6. BYSTOLIC [Concomitant]
  7. DIURETIC /00022001/ [Concomitant]
  8. PATCH (PRODUCT NAME UNKNOWN) [Concomitant]
  9. MAXALT [Concomitant]

REACTIONS (28)
  - Vaginal haemorrhage [None]
  - Muscle spasms [None]
  - Headache [None]
  - Pain [None]
  - Memory impairment [None]
  - Constipation [None]
  - Oropharyngeal pain [None]
  - Decreased appetite [None]
  - Nasal congestion [None]
  - Dysphonia [None]
  - Menstruation irregular [None]
  - Blood pressure fluctuation [None]
  - Glycosylated haemoglobin increased [None]
  - Abdominal pain lower [None]
  - Pain [None]
  - Blood glucose fluctuation [None]
  - Nausea [None]
  - Amenorrhoea [None]
  - Pain in extremity [None]
  - Blood pressure increased [None]
  - Acne [None]
  - Endometrial hypertrophy [None]
  - Hypotension [None]
  - Weight decreased [None]
  - Dysstasia [None]
  - Movement disorder [None]
  - Blood urine present [None]
  - Weight decreased [None]
